FAERS Safety Report 16342168 (Version 1)
Quarter: 2019Q2

REPORT INFORMATION
  Report Type: Spontaneous
  Country: US (occurrence: US)
  Receive Date: 20190521
  Receipt Date: 20190521
  Transmission Date: 20190711
  Serious: Yes (Hospitalization, Disabling, Other)
  Sender: FDA-Public Use
  Company Number: None

PATIENT
  Age: 44 Year
  Sex: Male
  Weight: 96.75 kg

DRUGS (15)
  1. TAMIFLU [Suspect]
     Active Substance: OSELTAMIVIR PHOSPHATE
     Indication: INFLUENZA
     Dates: start: 20171119, end: 20171124
  2. ONDANSETRON [Concomitant]
     Active Substance: ONDANSETRON
  3. PREGABALIN. [Concomitant]
     Active Substance: PREGABALIN
  4. FLONASE [Concomitant]
     Active Substance: FLUTICASONE PROPIONATE
  5. VALSARTAN. [Concomitant]
     Active Substance: VALSARTAN
  6. ASCORBIC VITAMINC [Concomitant]
  7. AMLOPINE [Concomitant]
     Active Substance: AMLODIPINE BESYLATE
  8. VIAGRA [Concomitant]
     Active Substance: SILDENAFIL CITRATE
  9. CYCLOBENZAPRINE. [Concomitant]
     Active Substance: CYCLOBENZAPRINE
  10. OXYCODONE [Concomitant]
     Active Substance: OXYCODONE
  11. CITALOPRAM [Concomitant]
     Active Substance: CITALOPRAM HYDROBROMIDE
  12. ALLERGRA-D ALLERGY AND CONGESTION [Concomitant]
  13. GUMMIE MULTI VITAMINS FOR ME [Concomitant]
  14. CARVEDILOL. [Concomitant]
     Active Substance: CARVEDILOL
  15. FUROSEMIDE. [Concomitant]
     Active Substance: FUROSEMIDE

REACTIONS (4)
  - Renal failure [None]
  - Toe amputation [None]
  - Foot amputation [None]
  - Sepsis [None]

NARRATIVE: CASE EVENT DATE: 20171119
